FAERS Safety Report 8133860-1 (Version None)
Quarter: 2012Q1

REPORT INFORMATION
  Report Type: 
  Country: None (occurrence: None)
  Receive Date: 20120213
  Receipt Date: 20120207
  Transmission Date: 20120608
  Serious: Yes (Death, Other)
  Sender: FDA-Public Use
  Company Number: IT-MERCK-1201ITA00055

PATIENT
  Age: 85 Year
  Sex: Male

DRUGS (9)
  1. WARFARIN SODIUM [Concomitant]
     Indication: ATRIAL FIBRILLATION
     Route: 048
  2. CEFAZOLIN SODIUM [Suspect]
     Indication: PNEUMONIA
     Route: 042
     Dates: start: 20111017, end: 20111023
  3. DUTASTERIDE [Concomitant]
     Route: 048
  4. NITROGLYCERIN [Concomitant]
     Route: 061
  5. PRIMAXIN [Suspect]
     Indication: PNEUMONIA
     Route: 041
     Dates: start: 20111023, end: 20111031
  6. AMLODIPINE BESYLATE [Concomitant]
     Route: 065
  7. CALCITRIOL [Concomitant]
     Route: 065
  8. TEICOPLANIN [Suspect]
     Indication: PNEUMONIA
     Route: 042
     Dates: start: 20111025, end: 20111031
  9. ESOMEPRAZOLE MAGNESIUM [Concomitant]
     Route: 065

REACTIONS (2)
  - CLOSTRIDIUM DIFFICILE COLITIS [None]
  - DEATH [None]
